FAERS Safety Report 5477488-0 (Version None)
Quarter: 2007Q4

REPORT INFORMATION
  Report Type: 
  Country: None (occurrence: None)
  Receive Date: 20071004
  Receipt Date: 20070924
  Transmission Date: 20080405
  Serious: Yes (Other)
  Sender: FDA-Public Use
  Company Number: GB-PFIZER INC-2007076598

PATIENT
  Sex: Male

DRUGS (8)
  1. CARDURA [Suspect]
     Route: 048
  2. IBUPROFEN [Concomitant]
     Dosage: TEXT:5%
  3. SIMVASTATIN [Concomitant]
     Route: 048
  4. AVANDIA [Concomitant]
     Dosage: TEXT:4MG/1000MG
     Route: 048
  5. PARAFFIN, LIQUID [Concomitant]
     Dosage: TEXT:EXTERNALLY
  6. METOPROLOL [Concomitant]
     Route: 048
  7. LISINOPRIL [Concomitant]
     Dosage: DAILY DOSE:20MG-FREQ:DAILY
     Route: 048
  8. ASPIRIN [Concomitant]
     Route: 048

REACTIONS (2)
  - ANAEMIA [None]
  - FAECES DISCOLOURED [None]
